FAERS Safety Report 4893750-4 (Version None)
Quarter: 2005Q4

REPORT INFORMATION
  Report Type: 
  Country: None (occurrence: None)
  Receive Date: 20051223
  Receipt Date: 20051112
  Transmission Date: 20060501
  Serious: No
  Sender: FDA-Public Use
  Company Number: 2005PV004349

PATIENT
  Age: 54 Year
  Sex: Female
  Weight: 116.5744 kg

DRUGS (16)
  1. SYMLIN [Suspect]
     Indication: DIABETES MELLITUS NON-INSULIN-DEPENDENT
     Dosage: 60 MCG; BID; SC
     Route: 058
     Dates: start: 20051110
  2. NEURONTIN [Concomitant]
  3. LOTENSIN [Concomitant]
  4. SYNTHROID [Concomitant]
  5. TOPROL [Concomitant]
  6. DITROPAN [Concomitant]
  7. NEXIUM [Concomitant]
  8. IRON SULFATETHIAMIN COMPOUND TAB [Concomitant]
  9. WELLBUTRIN [Concomitant]
  10. FOLIC ACID [Concomitant]
  11. COUMADIN [Concomitant]
  12. LOPID [Concomitant]
  13. COLACE [Concomitant]
  14. VITAMIN B-12 [Concomitant]
  15. LASIX [Concomitant]
  16. NOVOLIN 70/30 [Concomitant]

REACTIONS (4)
  - BLOOD GLUCOSE INCREASED [None]
  - BLOOD URINE [None]
  - DYSURIA [None]
  - URINARY TRACT INFECTION [None]
